FAERS Safety Report 24082940 (Version 1)
Quarter: 2024Q3

REPORT INFORMATION
  Report Type: Spontaneous
  Country: US (occurrence: US)
  Receive Date: 20240712
  Receipt Date: 20240712
  Transmission Date: 20241017
  Serious: No
  Sender: LEO PHARM
  Company Number: US-LEO Pharma-371888

PATIENT
  Age: 17 Year
  Sex: Male
  Weight: 40 kg

DRUGS (2)
  1. ADBRY [Suspect]
     Active Substance: TRALOKINUMAB-LDRM
     Indication: Dermatitis atopic
     Dosage: TREATMENT REPORTED AS ONGOING
     Route: 058
  2. ADBRY [Suspect]
     Active Substance: TRALOKINUMAB-LDRM
     Indication: Juvenile idiopathic arthritis
     Dosage: TREATMENT REPORTED AS ONGOING
     Route: 058

REACTIONS (2)
  - Injection site vesicles [Unknown]
  - Injection site pain [Unknown]
